FAERS Safety Report 9191410 (Version 2)
Quarter: 2013Q2

REPORT INFORMATION
  Report Type: Spontaneous
  Country: US (occurrence: US)
  Receive Date: 20130326
  Receipt Date: 20130424
  Transmission Date: 20140414
  Serious: Yes (Other)
  Sender: FDA-Public Use
  Company Number: PHEH2013US006610

PATIENT
  Sex: Female

DRUGS (5)
  1. DIOVAN HCT [Suspect]
     Dosage: UNK UKN, UNK
  2. HYDROCHLOROTHIAZIDE,VALSARTAN [Suspect]
     Dosage: UNK UKN, UNK
  3. NORVASC [Concomitant]
     Dosage: UNK UKN, UNK
  4. VITAMIN B-12 [Concomitant]
     Dosage: UNK UKN, UNK
  5. EYE DROPS [Concomitant]
     Dosage: UNK UKN, UNK

REACTIONS (1)
  - Glaucoma [Unknown]
